FAERS Safety Report 14350848 (Version 2)
Quarter: 2018Q1

REPORT INFORMATION
  Report Type: Spontaneous
  Country: CH (occurrence: CH)
  Receive Date: 20180104
  Receipt Date: 20180226
  Transmission Date: 20180509
  Serious: Yes (Hospitalization)
  Sender: FDA-Public Use
  Company Number: CH-PFIZER INC-2017555619

PATIENT
  Age: 83 Year
  Sex: Female

DRUGS (14)
  1. PLAVIX [Interacting]
     Active Substance: CLOPIDOGREL BISULFATE
     Indication: ACUTE MYOCARDIAL INFARCTION
     Dosage: 75MG, 1X/DAY
     Route: 048
     Dates: start: 20171201
  2. ATORVASTATIN [Concomitant]
     Active Substance: ATORVASTATIN
     Dosage: UNK
  3. PREDNISON [Concomitant]
     Active Substance: PREDNISONE
     Dosage: UNK
  4. QUETIAPIN [Concomitant]
     Active Substance: QUETIAPINE
     Dosage: UNK
  5. HEPARIN [Interacting]
     Active Substance: HEPARIN SODIUM
     Dosage: 6ML/H
     Route: 041
     Dates: start: 20171201, end: 20171205
  6. FRAGMIN [Suspect]
     Active Substance: DALTEPARIN SODIUM
     Indication: ACUTE MYOCARDIAL INFARCTION
     Dosage: 5000 IU, SINGLE
     Route: 051
     Dates: start: 20171206, end: 20171206
  7. ASPIRIN CARDIO [Interacting]
     Active Substance: ASPIRIN
     Indication: CORONARY ARTERY DISEASE
     Dosage: 100 MG, 1X/DAY (PLANNED FOR 1 YEAR)
     Route: 048
     Dates: start: 20171201
  8. BRILIQUE [Interacting]
     Active Substance: TICAGRELOR
     Indication: ACUTE MYOCARDIAL INFARCTION
     Dosage: 1 DF, SINGLE ADMINISTRATION ON ICU
     Route: 048
     Dates: start: 20171130, end: 20171130
  9. MARCOUMAR [Interacting]
     Active Substance: PHENPROCOUMON
     Indication: ATRIAL FIBRILLATION
     Dosage: 0.25 DF (= TABLET), 1X/DAY, PRIOR TO ADMISSION, ACCORDING TO INR
     Route: 048
     Dates: end: 20171129
  10. BELOC ZOK [Concomitant]
     Active Substance: METOPROLOL SUCCINATE
     Dosage: UNK
  11. DIOVAN [Concomitant]
     Active Substance: VALSARTAN
     Dosage: UNK
  12. PANTOZOL [Concomitant]
     Active Substance: PANTOPRAZOLE SODIUM
     Dosage: UNK
  13. CORDARONE [Concomitant]
     Active Substance: AMIODARONE HYDROCHLORIDE
     Dosage: 150 MG, SINGLE ADMINISTRATION ON ICU
     Route: 041
     Dates: start: 20171130, end: 20171130
  14. ELIQUIS [Concomitant]
     Active Substance: APIXABAN
     Indication: ANTICOAGULANT THERAPY
     Dosage: 2.5 MG, 2X/DAY ((STARTED IN THE EVENING OF 06DEC2017)
     Route: 048
     Dates: start: 20171206

REACTIONS (6)
  - Drug interaction [Unknown]
  - Haemorrhagic anaemia [Recovering/Resolving]
  - Epistaxis [Recovered/Resolved]
  - Application site haemorrhage [Recovered/Resolved]
  - Application site haemorrhage [Recovered/Resolved]
  - International normalised ratio increased [Recovered/Resolved]

NARRATIVE: CASE EVENT DATE: 201711
